FAERS Safety Report 16730373 (Version 1)
Quarter: 2019Q3

REPORT INFORMATION
  Report Type: Spontaneous
  Country: US (occurrence: US)
  Receive Date: 20190822
  Receipt Date: 20190822
  Transmission Date: 20191005
  Serious: No
  Sender: FDA-Public Use
  Company Number: US-009507513-1908USA008043

PATIENT
  Age: 37 Year
  Sex: Female

DRUGS (5)
  1. VITAFOL CAPLET [Concomitant]
     Active Substance: ALPHA-TOCOPHEROL\ASCORBIC ACID\CALCIUM\CYANOCOBALAMIN\FOLIC ACID\IRON\NIACIN\PYRIDOXINE HYDROCHLORIDE\RIBOFLAVIN\THIAMINE MONONITRATE\VITAMIN A\VITAMIN D
  2. PREDNISONE. [Concomitant]
     Active Substance: PREDNISONE
  3. FOLLISTIM [Suspect]
     Active Substance: FOLLITROPIN
     Dosage: (900/1.08) IU/ML, 225 UNITS, ONCE DAILY
     Route: 058
     Dates: start: 20190213
  4. GANIRELIX ACETATE INJECTION [Suspect]
     Active Substance: GANIRELIX ACETATE
     Indication: INFERTILITY FEMALE
     Dosage: 250 MCG DAILY
     Route: 058
     Dates: start: 20190213
  5. MEDROXYPROGESTERONE ACETATE. [Concomitant]
     Active Substance: MEDROXYPROGESTERONE ACETATE

REACTIONS (3)
  - Urticaria [Unknown]
  - Heart rate increased [Unknown]
  - Dyspnoea [Unknown]
